FAERS Safety Report 19920818 (Version 1)
Quarter: 2021Q4

REPORT INFORMATION
  Report Type: Spontaneous
  Country: US (occurrence: US)
  Receive Date: 20211005
  Receipt Date: 20211005
  Transmission Date: 20220303
  Serious: No
  Sender: FDA-Public Use
  Company Number: US-ADAMAS PHARMA, LLC-2020ADA02433

PATIENT
  Age: 66 Year
  Sex: Female
  Weight: 84.35 kg

DRUGS (15)
  1. GOCOVRI [Suspect]
     Active Substance: AMANTADINE
     Indication: Dyskinesia
     Dosage: 137 MG, 1X/DAY AT BEDTIME
     Route: 048
     Dates: start: 20201008, end: 20201014
  2. GOCOVRI [Suspect]
     Active Substance: AMANTADINE
     Dosage: 274 MG, 1X/DAY AT BEDTIME
     Route: 048
     Dates: start: 20201015, end: 202010
  3. GOCOVRI [Suspect]
     Active Substance: AMANTADINE
     Dosage: 137 MG, 1X/DAY AT BEDTIME
     Route: 048
     Dates: start: 202010, end: 202010
  4. GOCOVRI [Suspect]
     Active Substance: AMANTADINE
     Dosage: 137 MG, EVERY OTHER DAY AT BEDTIME
     Route: 048
     Dates: start: 202010, end: 2020
  5. SERTRALINE [Concomitant]
     Active Substance: SERTRALINE HYDROCHLORIDE
     Dosage: 100 MG, 1X/DAY
  6. CARBIDOPA\LEVODOPA [Concomitant]
     Active Substance: CARBIDOPA\LEVODOPA
     Dosage: 2 TABLETS, 4X/DAY
  7. CARBIDOPA\LEVODOPA [Concomitant]
     Active Substance: CARBIDOPA\LEVODOPA
     Dosage: 1 TABLETS, UP TO 1X/DAY IN THE MIDDLE OF THE NIGHT OCCASIONALLY
  8. VITAMIN D3 [Concomitant]
     Active Substance: CHOLECALCIFEROL
     Dosage: UNK
     Dates: end: 20201112
  9. RASAGILINE [Concomitant]
     Active Substance: RASAGILINE
     Dosage: 1 MG, 1X/DAY
  10. ROPINIROLE [Concomitant]
     Active Substance: ROPINIROLE
     Dosage: 8 MG, 1X/DAY
  11. VITAMIN B12 [Concomitant]
     Active Substance: CYANOCOBALAMIN
     Dosage: 2000 ?G, 1X/DAY
  12. VITAMINS [Concomitant]
     Active Substance: VITAMINS
     Dosage: UNK
     Dates: end: 20201112
  13. DIETARY SUPPLEMENT [Concomitant]
     Active Substance: DIETARY SUPPLEMENT
     Dosage: 600 MG, 1X/DAY
  14. FEXOFENADINE [Concomitant]
     Active Substance: FEXOFENADINE HYDROCHLORIDE
     Dosage: UNK, 1X/DAY
  15. ASPIRIN [Concomitant]
     Active Substance: ASPIRIN
     Dosage: UNK
     Dates: end: 2020

REACTIONS (20)
  - Acute kidney injury [Recovered/Resolved]
  - Hyperhidrosis [Recovering/Resolving]
  - Visual impairment [Recovered/Resolved]
  - Speech disorder [Recovered/Resolved]
  - Feeling hot [Recovering/Resolving]
  - Cognitive disorder [Recovered/Resolved]
  - Dysstasia [Recovered/Resolved]
  - Disturbance in attention [Recovered/Resolved]
  - Tooth disorder [Not Recovered/Not Resolved]
  - Middle insomnia [Recovering/Resolving]
  - Depressive symptom [Recovered/Resolved]
  - Dizziness [Unknown]
  - Fall [Unknown]
  - Anxiety [Recovered/Resolved]
  - Confusional state [Recovered/Resolved]
  - Disorientation [Recovered/Resolved]
  - Hallucinations, mixed [Recovered/Resolved]
  - Hypotension [Recovered/Resolved]
  - Urinary tract infection [Unknown]
  - Drug ineffective [Recovered/Resolved]

NARRATIVE: CASE EVENT DATE: 20200101
